FAERS Safety Report 7927453-6 (Version None)
Quarter: 2011Q4

REPORT INFORMATION
  Report Type: 
  Country: None (occurrence: None)
  Receive Date: 20111118
  Receipt Date: 20111114
  Transmission Date: 20120403
  Serious: Yes (Hospitalization)
  Sender: FDA-Public Use
  Company Number: IT-JNJFOC-20111105893

PATIENT
  Sex: Male
  Weight: 55.2 kg

DRUGS (4)
  1. PREDNISONE TAB [Concomitant]
  2. PROTON  PUMP INHIBITOR [Concomitant]
  3. REMICADE [Suspect]
     Indication: CROHN'S DISEASE
     Route: 042
     Dates: start: 20110214
  4. ANTIBIOTICS [Concomitant]
     Indication: CROHN'S DISEASE

REACTIONS (2)
  - DEHYDRATION [None]
  - GASTROENTERITIS [None]
